FAERS Safety Report 9079589 (Version 1)
Quarter: 2013Q1

REPORT INFORMATION
  Report Type: Report from Study
  Country: US (occurrence: US)
  Receive Date: 20130130
  Receipt Date: 20130130
  Transmission Date: 20140127
  Serious: No
  Sender: FDA-Public Use
  Company Number: US-ABBOTT-12P-163-0950991-00

PATIENT
  Age: 61 Year
  Sex: Female

DRUGS (11)
  1. HUMIRA 40 MG/0.8 ML PEN [Suspect]
     Indication: RHEUMATOID ARTHRITIS
     Dates: start: 20120409, end: 20120423
  2. HUMIRA 40 MG/0.8 ML PEN [Suspect]
     Dates: start: 20120521
  3. PREDNISONE [Suspect]
     Indication: PRODUCT USED FOR UNKNOWN INDICATION
  4. LEFLUNOMIDE [Suspect]
     Indication: PRODUCT USED FOR UNKNOWN INDICATION
     Dosage: BID
     Route: 048
  5. NORCO [Concomitant]
     Indication: PAIN
     Dosage: 10/325 AS NEEDED
  6. XANAX [Concomitant]
     Indication: ANXIETY
     Route: 048
  7. RAMIPRIL [Concomitant]
     Indication: HYPERTENSION
     Route: 048
  8. MULTIVITAMIN [Concomitant]
     Indication: PRODUCT USED FOR UNKNOWN INDICATION
  9. ASA [Concomitant]
     Indication: PROPHYLAXIS
     Route: 048
  10. CALCIUM [Concomitant]
     Indication: PRODUCT USED FOR UNKNOWN INDICATION
  11. VITAMIN D [Concomitant]
     Indication: VITAMIN SUPPLEMENTATION

REACTIONS (7)
  - Eyelid oedema [Recovered/Resolved]
  - Eyelid oedema [Recovered/Resolved]
  - Eyelid oedema [Recovered/Resolved]
  - Fatigue [Recovered/Resolved]
  - Pallor [Recovered/Resolved]
  - Oedema peripheral [Recovered/Resolved]
  - Blister [Recovered/Resolved]
